FAERS Safety Report 8969154 (Version 1)
Quarter: 2012Q4

REPORT INFORMATION
  Report Type: 
  Country: US (occurrence: US)
  Receive Date: 20121217
  Receipt Date: 20121217
  Transmission Date: 20130627
  Serious: Yes (Other)
  Sender: FDA-Public Use
  Company Number: US-BAYER-2012-130663

PATIENT
  Age: 65 Year
  Sex: Male
  Weight: 88.89 kg

DRUGS (3)
  1. BRONKAID [Suspect]
     Dosage: 1 DF, QD
     Route: 048
     Dates: start: 2012
  2. OXYGEN [Concomitant]
  3. HEART MEDICATION [Concomitant]

REACTIONS (5)
  - Cardiac disorder [Not Recovered/Not Resolved]
  - Tremor [Not Recovered/Not Resolved]
  - Blood pressure abnormal [Not Recovered/Not Resolved]
  - Eating disorder [Not Recovered/Not Resolved]
  - Weight decreased [Unknown]
